FAERS Safety Report 12403583 (Version 1)
Quarter: 2016Q2

REPORT INFORMATION
  Report Type: Spontaneous
  Country: US (occurrence: US)
  Receive Date: 20160525
  Receipt Date: 20160525
  Transmission Date: 20160815
  Serious: No
  Sender: FDA-Public Use
  Company Number: US-BRISTOL-MYERS SQUIBB COMPANY-BMS-2016-040110

PATIENT
  Sex: Male
  Weight: 72.11 kg

DRUGS (1)
  1. SPRYCEL [Suspect]
     Active Substance: DASATINIB
     Indication: PRODUCT USE ISSUE
     Dosage: 1 TAB, UNK
     Route: 048
     Dates: start: 20130307

REACTIONS (3)
  - Bone pain [Unknown]
  - Off label use [Unknown]
  - Inappropriate schedule of drug administration [Unknown]
